FAERS Safety Report 10835500 (Version 1)
Quarter: 2015Q1

REPORT INFORMATION
  Report Type: Report from Study
  Country: US (occurrence: US)
  Receive Date: 20150219
  Receipt Date: 20150219
  Transmission Date: 20150721
  Serious: No
  Sender: FDA-Public Use
  Company Number: US-ABBVIE-14P-163-1204485-00

PATIENT
  Age: 33 Year
  Sex: Female

DRUGS (12)
  1. PROCTOSOL HC [Concomitant]
     Indication: PRODUCT USED FOR UNKNOWN INDICATION
     Route: 054
  2. HUMIRA [Suspect]
     Active Substance: ADALIMUMAB
     Indication: COLITIS ULCERATIVE
     Dates: start: 20130718
  3. PROVENTIL [Concomitant]
     Active Substance: ALBUTEROL
     Indication: ASTHMA
     Route: 055
  4. HUMIRA [Suspect]
     Active Substance: ADALIMUMAB
     Dates: start: 2013
  5. DIPHENOXYLATE HCL AND ATROPINE SULFATE [Concomitant]
     Active Substance: ATROPINE SULFATE\DIPHENOXYLATE HYDROCHLORIDE
     Indication: PRODUCT USED FOR UNKNOWN INDICATION
     Dosage: ONE
  6. HUMIRA [Suspect]
     Active Substance: ADALIMUMAB
     Dates: start: 2014, end: 2014
  7. BALSALAZIDE DISOD [Concomitant]
     Indication: PRODUCT USED FOR UNKNOWN INDICATION
     Dosage: THREE PILLS
  8. KANASA [Concomitant]
     Indication: PRODUCT USED FOR UNKNOWN INDICATION
  9. HUMIRA [Suspect]
     Active Substance: ADALIMUMAB
     Dates: start: 20140207
  10. DAPSONE. [Concomitant]
     Active Substance: DAPSONE
     Indication: PRODUCT USED FOR UNKNOWN INDICATION
  11. DAPSONE. [Concomitant]
     Active Substance: DAPSONE
     Dates: start: 20140120
  12. TRAMADOL [Concomitant]
     Active Substance: TRAMADOL
     Indication: PRODUCT USED FOR UNKNOWN INDICATION
     Dosage: UP TO THRICE A DAY

REACTIONS (6)
  - Dermatitis [Unknown]
  - Colitis ulcerative [Not Recovered/Not Resolved]
  - Cyst [Recovered/Resolved]
  - Fibromyalgia [Unknown]
  - Abdominal distension [Unknown]
  - Bronchitis [Unknown]

NARRATIVE: CASE EVENT DATE: 2013
